FAERS Safety Report 9305812 (Version 1)
Quarter: 2013Q2

REPORT INFORMATION
  Report Type: Spontaneous
  Country: US (occurrence: US)
  Receive Date: 20130523
  Receipt Date: 20130523
  Transmission Date: 20140414
  Serious: No
  Sender: FDA-Public Use
  Company Number: US-PFIZER INC-2013153553

PATIENT
  Sex: Female

DRUGS (1)
  1. XELJANZ [Suspect]
     Dosage: UNK
     Dates: start: 2013, end: 2013

REACTIONS (3)
  - Rash [Unknown]
  - Pruritus [Unknown]
  - Diarrhoea [Unknown]
